FAERS Safety Report 8122560-X (Version None)
Quarter: 2012Q1

REPORT INFORMATION
  Report Type: 
  Country: None (occurrence: None)
  Receive Date: 20120208
  Receipt Date: 20111112
  Transmission Date: 20120608
  Serious: Yes (Other)
  Sender: FDA-Public Use
  Company Number: IT-ROCHE-1007018

PATIENT
  Sex: Female

DRUGS (4)
  1. TRAZODONE HCL [Suspect]
     Indication: INTENTIONAL OVERDOSE
     Route: 048
     Dates: start: 20110901, end: 20110901
  2. ALPRAZOLAM [Suspect]
     Indication: INTENTIONAL OVERDOSE
     Route: 048
     Dates: start: 20110901, end: 20110901
  3. CLONAZEPAM [Suspect]
     Indication: INTENTIONAL OVERDOSE
     Route: 048
     Dates: start: 20110901, end: 20110901
  4. TRAZODONE HCL [Suspect]
     Route: 048
     Dates: start: 20110901, end: 20110901

REACTIONS (3)
  - VOMITING [None]
  - NAUSEA [None]
  - BRADYPHRENIA [None]
